FAERS Safety Report 8894271 (Version 3)
Quarter: 2012Q4

REPORT INFORMATION
  Report Type: 
  Country: US (occurrence: US)
  Receive Date: 20121108
  Receipt Date: 20121122
  Transmission Date: 20130627
  Serious: Yes (Hospitalization, Other)
  Sender: FDA-Public Use
  Company Number: US-BIOGENIDEC-2012BI050699

PATIENT
  Sex: Female

DRUGS (1)
  1. TYSABRI [Suspect]
     Indication: MULTIPLE SCLEROSIS
     Route: 042
     Dates: start: 20081002

REACTIONS (5)
  - Pain in jaw [Unknown]
  - Chest pain [Unknown]
  - Cardiovascular disorder [Unknown]
  - Drug specific antibody present [Unknown]
  - Coronary artery disease [Recovered/Resolved]
